FAERS Safety Report 24082257 (Version 1)
Quarter: 2024Q3

REPORT INFORMATION
  Report Type: Spontaneous
  Country: ES (occurrence: ES)
  Receive Date: 20240712
  Receipt Date: 20240712
  Transmission Date: 20241017
  Serious: Yes (Other)
  Sender: AUROBINDO
  Company Number: ES-ROCHE-10000003814

PATIENT
  Age: 80 Year
  Sex: Female

DRUGS (3)
  1. CARBOPLATIN [Suspect]
     Active Substance: CARBOPLATIN
     Indication: Neoplasm
     Dosage: UNK, EVERY 3 WEEK (MOST RECENT DOSE: 16/MAR/2023(300 MG))
     Route: 042
     Dates: start: 20230210, end: 20230316
  2. ABRAXANE [Suspect]
     Active Substance: PACLITAXEL
     Indication: Neoplasm
     Dosage: UNK, EVERY 3 WEEK (DATE OF MOST RECENT DOSE: 23/MAR/2023 (110 MG))
     Route: 042
     Dates: start: 20230222, end: 20230323
  3. PEMBROLIZUMAB [Suspect]
     Active Substance: PEMBROLIZUMAB
     Indication: Neoplasm
     Dosage: UNK, EVERY 3 WEEK (DATE OF MOST RECENT DOSE: 14/APR/2023 (200 MG))
     Route: 042
     Dates: start: 20230210, end: 20230414

REACTIONS (1)
  - Immunotoxicity [Recovered/Resolved]

NARRATIVE: CASE EVENT DATE: 20230413
